FAERS Safety Report 9584894 (Version 1)
Quarter: 2013Q4

REPORT INFORMATION
  Report Type: Spontaneous
  Country: US (occurrence: US)
  Receive Date: 20131002
  Receipt Date: 20131002
  Transmission Date: 20140711
  Serious: No
  Sender: FDA-Public Use
  Company Number: US-AMGEN-USASP2013056536

PATIENT
  Age: 71 Year
  Sex: Female
  Weight: 72.56 kg

DRUGS (7)
  1. ENBREL [Suspect]
     Indication: RHEUMATOID ARTHRITIS
     Dosage: 50 MG, QWK
     Route: 058
  2. ARAVA [Concomitant]
     Dosage: 10 MG, UNK
  3. MULTIVITAMINS, PLAIN [Concomitant]
     Dosage: UNK
  4. VITAMIN D3 [Concomitant]
     Dosage: 5000 UNIT, UNK
  5. AMITRIPTYLIN [Concomitant]
     Dosage: 10 MG, UNK
  6. VICODIN [Concomitant]
     Dosage: UNK MG, UNK 5-500 MG
  7. TURMERIC                           /01079602/ [Concomitant]
     Dosage: 500 MG, UNK

REACTIONS (3)
  - Drug ineffective [Unknown]
  - Injection site pruritus [Unknown]
  - Injection site erythema [Unknown]
